FAERS Safety Report 7653622-9 (Version None)
Quarter: 2011Q3

REPORT INFORMATION
  Report Type: 
  Country: None (occurrence: None)
  Receive Date: 20110803
  Receipt Date: 20110803
  Transmission Date: 20111222
  Serious: Yes (Hospitalization, Disabling)
  Sender: FDA-Public Use
  Company Number: None

PATIENT
  Sex: Female

DRUGS (2)
  1. BONE TISSUE HUMAN [Suspect]
  2. BONE TISSUE HUMAN [Suspect]
     Dates: start: 20090713, end: 20090713

REACTIONS (3)
  - OFF LABEL USE [None]
  - BACK PAIN [None]
  - CONDITION AGGRAVATED [None]
